FAERS Safety Report 11214773 (Version 1)
Quarter: 2015Q2

REPORT INFORMATION
  Report Type: Spontaneous
  Country: US (occurrence: None)
  Receive Date: 20150622
  Receipt Date: 20150622
  Transmission Date: 20150821
  Serious: No
  Sender: FDA-Public Use
  Company Number: None

PATIENT
  Age: 38 Year
  Sex: Female

DRUGS (2)
  1. SIMPONI [Suspect]
     Active Substance: GOLIMUMAB
     Indication: CROHN^S DISEASE
     Dosage: 100 MG  EVEY 4 WEEKS  SUBCUTANEOUS
     Route: 058
     Dates: start: 20150410
  2. SIMPONI [Suspect]
     Active Substance: GOLIMUMAB
     Dosage: 100 MG  EVEY 4 WEEKS  SUBCUTANEOUS
     Route: 058
     Dates: start: 20150410

REACTIONS (1)
  - Alopecia [None]

NARRATIVE: CASE EVENT DATE: 20150608
